FAERS Safety Report 16779003 (Version 1)
Quarter: 2019Q3

REPORT INFORMATION
  Report Type: Spontaneous
  Country: FR (occurrence: FR)
  Receive Date: 20190906
  Receipt Date: 20190906
  Transmission Date: 20191005
  Serious: Yes (Other)
  Sender: FDA-Public Use
  Company Number: FR-AUROBINDO-AUR-APL-2019-058296

PATIENT

DRUGS (6)
  1. IZALGI [Suspect]
     Active Substance: ACETAMINOPHEN\OPIUM
     Indication: BACK PAIN
     Dosage: 2 DOSAGE FORM, ONCE A DAY
     Route: 048
     Dates: start: 20190604, end: 20190618
  2. SIMVASTATINE ACCORD HEALTHCARE [Suspect]
     Active Substance: SIMVASTATIN
     Indication: DYSLIPIDAEMIA
     Dosage: 10 MILLIGRAM, ONCE A DAY
     Route: 048
     Dates: end: 20190618
  3. PARACETAMOL ARROW [Suspect]
     Active Substance: ACETAMINOPHEN
     Indication: BACK PAIN
     Dosage: 3 GRAM, ONCE A DAY
     Route: 048
     Dates: start: 20190604, end: 20190618
  4. VALACICLOVIR ALMUS [Suspect]
     Active Substance: VALACYCLOVIR HYDROCHLORIDE
     Indication: HERPES ZOSTER
     Dosage: 3 GRAM, ONCE A DAY
     Route: 048
     Dates: start: 20190608, end: 20190618
  5. NEURONTIN [Interacting]
     Active Substance: GABAPENTIN
     Indication: HERPES ZOSTER
     Dosage: 600 MILLIGRAM, ONCE A DAY
     Route: 048
     Dates: start: 20190608, end: 20190618
  6. KETOPROFEN ARROW LP 100 MG PROLONGED RELEASE SCORED TABLETS [Suspect]
     Active Substance: KETOPROFEN
     Indication: BACK PAIN
     Dosage: 300 MILLIGRAM, ONCE A DAY
     Route: 048
     Dates: start: 20190604, end: 20190608

REACTIONS (1)
  - Hepatitis [Recovered/Resolved]

NARRATIVE: CASE EVENT DATE: 20190618
